FAERS Safety Report 15942998 (Version 1)
Quarter: 2019Q1

REPORT INFORMATION
  Report Type: Spontaneous
  Country: US (occurrence: US)
  Receive Date: 20190117
  Receipt Date: 20190117
  Transmission Date: 20190417
  Serious: No
  Sender: FDA-Public Use
  Company Number: None

PATIENT

DRUGS (2)
  1. SILDENAFIL. [Suspect]
     Active Substance: SILDENAFIL
     Route: 048
     Dates: start: 201805
  2. LETAIRIS [Concomitant]
     Active Substance: AMBRISENTAN

REACTIONS (1)
  - Death [None]
